FAERS Safety Report 18967568 (Version 1)
Quarter: 2021Q1

REPORT INFORMATION
  Report Type: Spontaneous
  Country: US (occurrence: US)
  Receive Date: 20210304
  Receipt Date: 20210304
  Transmission Date: 20210420
  Serious: Yes (Other)
  Sender: FDA-Public Use
  Company Number: US-PFIZER INC-2021225055

PATIENT
  Sex: Male
  Weight: 1.3 kg

DRUGS (3)
  1. MAGNESIUM SULFATE. [Suspect]
     Active Substance: MAGNESIUM SULFATE
     Indication: SPINA BIFIDA
     Dosage: UNK
     Route: 064
  2. TERBUTALINE [Suspect]
     Active Substance: TERBUTALINE
     Indication: SPINA BIFIDA
     Dosage: UNK
     Route: 064
  3. INDOMETHACIN [INDOMETACIN] [Suspect]
     Active Substance: INDOMETHACIN
     Indication: SPINA BIFIDA
     Dosage: UNK
     Route: 064

REACTIONS (2)
  - Premature baby [Unknown]
  - Maternal exposure during pregnancy [Unknown]
